FAERS Safety Report 24656697 (Version 2)
Quarter: 2024Q4

REPORT INFORMATION
  Report Type: Report from Study
  Country: US (occurrence: US)
  Receive Date: 20241124
  Receipt Date: 20241211
  Transmission Date: 20250115
  Serious: Yes (Other)
  Sender: ABBVIE
  Company Number: US-ABBVIE-6013012

PATIENT
  Age: 58 Year
  Sex: Female
  Weight: 81.646 kg

DRUGS (1)
  1. SKYRIZI [Suspect]
     Active Substance: RISANKIZUMAB-RZAA
     Indication: Psoriasis
     Route: 058
     Dates: start: 20240605

REACTIONS (3)
  - Seizure [Recovering/Resolving]
  - Animal scratch [Unknown]
  - Rabies [Unknown]

NARRATIVE: CASE EVENT DATE: 20240101
